FAERS Safety Report 5445257-3 (Version None)
Quarter: 2007Q3

REPORT INFORMATION
  Report Type: 
  Country: None (occurrence: None)
  Receive Date: 20070731
  Receipt Date: 20070511
  Transmission Date: 20080115
  Serious: Yes (Hospitalization)
  Sender: FDA-Public Use
  Company Number: US200705003177

PATIENT
  Age: 48 Year
  Sex: Female

DRUGS (7)
  1. BYETTA [Suspect]
     Indication: TYPE 2 DIABETES MELLITUS
     Dosage: 5 UG, 2/D, SUBCUTANEOUS 10 UG, 2/D, SUBCUTANEOUS 5 UG, 2/D, SUBCUTANEOUS 10 U G, 2/D, SUBCUTANEOUS
     Route: 058
     Dates: start: 20050701, end: 20050801
  2. BYETTA [Suspect]
     Indication: TYPE 2 DIABETES MELLITUS
     Dosage: 5 UG, 2/D, SUBCUTANEOUS 10 UG, 2/D, SUBCUTANEOUS 5 UG, 2/D, SUBCUTANEOUS 10 U G, 2/D, SUBCUTANEOUS
     Route: 058
     Dates: start: 20050801, end: 20060101
  3. BYETTA [Suspect]
     Indication: TYPE 2 DIABETES MELLITUS
     Dosage: 5 UG, 2/D, SUBCUTANEOUS 10 UG, 2/D, SUBCUTANEOUS 5 UG, 2/D, SUBCUTANEOUS 10 U G, 2/D, SUBCUTANEOUS
     Route: 058
     Dates: start: 20070319, end: 20070419
  4. BYETTA [Suspect]
     Indication: TYPE 2 DIABETES MELLITUS
     Dosage: 5 UG, 2/D, SUBCUTANEOUS 10 UG, 2/D, SUBCUTANEOUS 5 UG, 2/D, SUBCUTANEOUS 10 U G, 2/D, SUBCUTANEOUS
     Route: 058
     Dates: start: 20070419
  5. ACTOS [Concomitant]
  6. METFORMIN HCL [Concomitant]
  7. AMARYL [Concomitant]

REACTIONS (7)
  - ANAEMIA [None]
  - DECREASED APPETITE [None]
  - DEHYDRATION [None]
  - DIARRHOEA [None]
  - DYSGEUSIA [None]
  - NAUSEA [None]
  - VOMITING [None]
